FAERS Safety Report 4788738-8 (Version None)
Quarter: 2005Q4

REPORT INFORMATION
  Report Type: 
  Country: None (occurrence: None)
  Receive Date: 20051005
  Receipt Date: 20050912
  Transmission Date: 20060501
  Serious: Yes (Disabling)
  Sender: FDA-Public Use
  Company Number: PHHO2005MX14357

PATIENT
  Age: 68 Year
  Sex: Female
  Weight: 70 kg

DRUGS (8)
  1. NATEGLINIDE [Suspect]
     Indication: GLUCOSE TOLERANCE IMPAIRED
     Dosage: LEVEL 1
     Dates: start: 20030203
  2. NATEGLINIDE [Suspect]
     Dosage: LEVEL 2
  3. VALSARTAN [Suspect]
     Indication: CARDIOVASCULAR DISORDER
     Dosage: LEVEL 1
     Dates: start: 20030203
  4. VALSARTAN [Suspect]
     Dosage: LEVEL 2
  5. NSAID'S [Concomitant]
     Indication: FALL
  6. DICLOFENAC [Suspect]
     Indication: ANTIINFLAMMATORY THERAPY
  7. PARACETAMOL [Suspect]
  8. NAPROXEN [Suspect]

REACTIONS (2)
  - ABDOMINAL PAIN UPPER [None]
  - GASTROOESOPHAGEAL REFLUX DISEASE [None]
